FAERS Safety Report 9250936 (Version 2)
Quarter: 2014Q1

REPORT INFORMATION
  Report Type: Spontaneous
  Country: US (occurrence: None)
  Receive Date: 20130305
  Receipt Date: 20140306
  Transmission Date: 20141002
  Serious: Yes (Other)
  Sender: FDA-Public Use
  Company Number: 163-21880-12100144

PATIENT
  Age: 67 Year
  Sex: Female
  Weight: 48.5 kg

DRUGS (11)
  1. REVLIMID [Suspect]
     Indication: PLASMA CELL MYELOMA
     Dosage: 1 IN 1 D
     Route: 048
     Dates: start: 200811, end: 2010
  2. DEXAMETHASONE [Suspect]
     Indication: PLASMA CELL MYELOMA
     Route: 048
  3. LEVOTHYROXINE (LEVOTHYROXINE) (TABLETS) [Concomitant]
  4. ASPIRIN (ACETYLSALICYLIC ACID) (TABLETS) [Concomitant]
  5. LYRICA (PREGABALIN) (CAPSULES) [Concomitant]
  6. PREMARIN (ESTROGENS CONJUGATED) (CREAM) [Concomitant]
  7. OMEGA 3 + VITAMIN D (OMEGA - 3 TRIGLYCERIDES W/VITAMIN D NOS/XANTOP) [Concomitant]
  8. MELOXICAM (MELOXICAM) (TABLETS) [Concomitant]
  9. CENTRUM COMPLETE MULTIVITAMINS (TABLETS) [Concomitant]
  10. CALCIUM 600 + D (LEKOVIT CA) (TABLETS) [Concomitant]
  11. ALENDRONATE SODIUM (ALENDRONATE SODIUM) (TABLETS) [Concomitant]

REACTIONS (7)
  - Diarrhoea [None]
  - Pruritus [None]
  - Fatigue [None]
  - Osteoporosis [None]
  - Nausea [None]
  - Pruritus [None]
  - Vomiting [None]
